FAERS Safety Report 4491915-7 (Version None)
Quarter: 2004Q4

REPORT INFORMATION
  Report Type: 
  Country: None (occurrence: None)
  Receive Date: 20041101
  Receipt Date: 20041028
  Transmission Date: 20050328
  Serious: Yes (Hospitalization)
  Sender: FDA-Public Use
  Company Number: 2004-09-0550

PATIENT
  Age: 47 Year
  Sex: Male
  Weight: 96.1626 kg

DRUGS (9)
  1. PEG-INTRON [Suspect]
     Indication: HEPATITIS C
     Dates: end: 20040909
  2. REBETOL [Suspect]
     Indication: HEPATITIS C
     Dosage: ORAL
     Route: 048
     Dates: end: 20040909
  3. PAXIL [Concomitant]
  4. DIOVAN [Concomitant]
  5. AMARYL [Concomitant]
  6. NIACIN [Concomitant]
  7. VIREAD [Concomitant]
  8. ATAZANAVIR [Concomitant]
  9. ZERIT [Concomitant]

REACTIONS (9)
  - COUGH [None]
  - DECREASED APPETITE [None]
  - DIARRHOEA [None]
  - DRUG INTERACTION [None]
  - INFLUENZA LIKE ILLNESS [None]
  - NASAL CONGESTION [None]
  - NEUROPATHY [None]
  - PAIN [None]
  - RENAL FAILURE ACUTE [None]
